FAERS Safety Report 5087197-8 (Version None)
Quarter: 2006Q3

REPORT INFORMATION
  Report Type: 
  Country: None (occurrence: None)
  Receive Date: 20060821
  Receipt Date: 20060809
  Transmission Date: 20061208
  Serious: Yes (Other)
  Sender: FDA-Public Use
  Company Number: 2006MP000945

PATIENT
  Age: 72 Year
  Sex: Male

DRUGS (4)
  1. AGGRASTAT [Suspect]
     Dosage: SEE IMAGE
     Route: 042
     Dates: start: 20060718, end: 20060718
  2. AGGRASTAT [Suspect]
     Dosage: SEE IMAGE
     Route: 042
     Dates: start: 20060718, end: 20060720
  3. ENOXAPARIN SODIUM [Suspect]
     Dosage: 16 IU;QD;SC
     Route: 058
     Dates: start: 20060718, end: 20060724
  4. CLOPIDOGREL BISULFATE (CLOPIDOGREL BISULFATE) [Suspect]
     Dosage: 75 MG;QD;PO
     Route: 048
     Dates: start: 20060719, end: 20060726

REACTIONS (3)
  - HAEMOLYSIS [None]
  - HEPATIC ENZYME ABNORMAL [None]
  - THROMBOCYTOPENIA [None]
